FAERS Safety Report 7511092-5 (Version None)
Quarter: 2011Q2

REPORT INFORMATION
  Report Type: 
  Country: None (occurrence: None)
  Receive Date: 20110531
  Receipt Date: 20110516
  Transmission Date: 20111010
  Serious: Yes (Hospitalization, Other)
  Sender: FDA-Public Use
  Company Number: HR-JNJFOC-20110508258

PATIENT
  Sex: Male

DRUGS (7)
  1. RISPERDAL CONSTA [Suspect]
     Route: 030
     Dates: start: 20070101
  2. QUETIAPINE [Concomitant]
     Route: 065
  3. ALPRAZOLAM [Suspect]
     Indication: PSYCHOTIC DISORDER
     Route: 065
     Dates: start: 20040101
  4. RISPERIDONE [Suspect]
     Indication: PSYCHOTIC DISORDER
     Route: 048
     Dates: start: 20040101
  5. RISPERDAL CONSTA [Suspect]
     Indication: SCHIZOPHRENIA, PARANOID TYPE
     Route: 030
     Dates: start: 20061201, end: 20070101
  6. MOCLOBEMID [Concomitant]
     Route: 065
  7. SERTRALINE HYDROCHLORIDE [Suspect]
     Indication: PSYCHOTIC DISORDER
     Route: 065
     Dates: start: 20040101

REACTIONS (3)
  - TREATMENT NONCOMPLIANCE [None]
  - SOCIAL PHOBIA [None]
  - PSYCHOTIC DISORDER [None]
